FAERS Safety Report 5179897-6 (Version None)
Quarter: 2006Q4

REPORT INFORMATION
  Report Type: 
  Country: None (occurrence: None)
  Receive Date: 20061211
  Receipt Date: 20061204
  Transmission Date: 20070319
  Serious: Yes (Disabling)
  Sender: FDA-Public Use
  Company Number: 111881ISR

PATIENT
  Sex: Female

DRUGS (10)
  1. SALAMOL CFC-FREE INHALER (SALBUTAMOL) [Suspect]
     Indication: COUGH
     Dosage: 800 MCG (100 MCG,8 IN 1 D)
     Route: 055
     Dates: start: 20050927, end: 20060222
  2. SALAMOL CFC-FREE INHALER (SALBUTAMOL) [Suspect]
     Indication: NASOPHARYNGEAL DISORDER
     Dosage: 800 MCG (100 MCG,8 IN 1 D)
     Route: 055
     Dates: start: 20050927, end: 20060222
  3. QVAR EASI-BREATHE 100 MICROGRAMS PER ACTUATION INHALER (BECLOMETHASONE [Suspect]
     Indication: COUGH
     Dosage: 400 MCG (100 MCG,4 IN 1 D)
     Route: 055
     Dates: start: 20051006, end: 20060222
  4. QVAR EASI-BREATHE 100 MICROGRAMS PER ACTUATION INHALER (BECLOMETHASONE [Suspect]
     Indication: NASOPHARYNGEAL DISORDER
     Dosage: 400 MCG (100 MCG,4 IN 1 D)
     Route: 055
     Dates: start: 20051006, end: 20060222
  5. QVAR EASI-BREATHE 100 MICROGRAMS PER ACTUATION INHALER (BECLOMETHASONE [Suspect]
     Indication: COUGH
     Dosage: 400 MCG (100 MCG,4 IN 1 D)
     Route: 055
     Dates: start: 20060410, end: 20060424
  6. QVAR EASI-BREATHE 100 MICROGRAMS PER ACTUATION INHALER (BECLOMETHASONE [Suspect]
     Indication: NASOPHARYNGEAL DISORDER
     Dosage: 400 MCG (100 MCG,4 IN 1 D)
     Route: 055
     Dates: start: 20060410, end: 20060424
  7. PREDNISOLONE [Concomitant]
  8. FERROUS SULFATE TAB [Concomitant]
  9. ACETYLCYSTEINE [Concomitant]
  10. NACLOGY [Concomitant]

REACTIONS (18)
  - ABASIA [None]
  - BURNOUT SYNDROME [None]
  - COUGH [None]
  - DRUG HYPERSENSITIVITY [None]
  - FEAR [None]
  - GAIT DISTURBANCE [None]
  - HYPERVENTILATION [None]
  - IMPAIRED WORK ABILITY [None]
  - INCREASED UPPER AIRWAY SECRETION [None]
  - PARAESTHESIA [None]
  - PARALYSIS [None]
  - PSYCHOSOMATIC DISEASE [None]
  - RESPIRATORY DISORDER [None]
  - SENSATION OF HEAVINESS [None]
  - SPEECH DISORDER [None]
  - TETANY [None]
  - TREMOR [None]
  - VISUAL DISTURBANCE [None]
